FAERS Safety Report 8272994-8 (Version None)
Quarter: 2012Q2

REPORT INFORMATION
  Report Type: 
  Country: None (occurrence: None)
  Receive Date: 20120406
  Receipt Date: 20120406
  Transmission Date: 20120825
  Serious: Yes (Hospitalization)
  Sender: FDA-Public Use
  Company Number: None

PATIENT
  Sex: Female
  Weight: 87.1 kg

DRUGS (2)
  1. LOVASTATIN [Suspect]
     Dosage: 20MG DAILY ORAL
     Route: 048
     Dates: start: 20111118
  2. LOVASTATIN [Suspect]
     Dosage: 20MG DAILY ORAL
     Route: 048
     Dates: start: 20120301

REACTIONS (1)
  - RHABDOMYOLYSIS [None]
